FAERS Safety Report 5883795-X (Version None)
Quarter: 2008Q3

REPORT INFORMATION
  Report Type: 
  Country: None (occurrence: None)
  Receive Date: 20080915
  Receipt Date: 20080905
  Transmission Date: 20090109
  Serious: Yes (Hospitalization, Other)
  Sender: FDA-Public Use
  Company Number: US-AMGEN-QUU300911

PATIENT
  Sex: Female
  Weight: 109.9 kg

DRUGS (22)
  1. ENBREL [Suspect]
     Indication: RHEUMATOID ARTHRITIS
     Route: 058
     Dates: start: 20010101
  2. ENBREL [Suspect]
     Indication: PSORIATIC ARTHROPATHY
  3. PREDNISONE TAB [Concomitant]
  4. EXENATIDE [Concomitant]
  5. METFORMIN HCL [Concomitant]
  6. DIGOXIN [Concomitant]
  7. TOPROL-XL [Concomitant]
  8. DIOVAN [Concomitant]
  9. LIPITOR [Concomitant]
  10. ZYRTEC [Concomitant]
  11. METHIMAZOLE [Concomitant]
  12. PREDNISONE TAB [Concomitant]
  13. TYLENOL (CAPLET) [Concomitant]
  14. ASPIRIN [Concomitant]
  15. CHRONDROITAN + GLUCOSAMINE [Concomitant]
  16. CENTRUM SILVER [Concomitant]
  17. LOVAZA [Concomitant]
  18. FISH OIL [Concomitant]
  19. FIBERCON [Concomitant]
  20. UNSPECIFIED STEROIDS [Concomitant]
     Route: 061
  21. GOLD [Concomitant]
  22. METHOTREXATE [Concomitant]

REACTIONS (2)
  - BASEDOW'S DISEASE [None]
  - ENDOCRINE OPHTHALMOPATHY [None]
